FAERS Safety Report 19293098 (Version 3)
Quarter: 2021Q2

REPORT INFORMATION
  Report Type: Spontaneous
  Country: HU (occurrence: HU)
  Receive Date: 20210524
  Receipt Date: 20210609
  Transmission Date: 20210717
  Serious: Yes (Other)
  Sender: FDA-Public Use
  Company Number: HU-VELOXIS PHARMACEUTICALS-2021VELHU-000339

PATIENT
  Age: 54 Year
  Sex: Male

DRUGS (18)
  1. PRAZOSIN. [Concomitant]
     Active Substance: PRAZOSIN
     Indication: SUPINE HYPERTENSION
     Dosage: 2 MG, 2X PER DAY
     Route: 065
  2. MYCOPHENOLATE [Suspect]
     Active Substance: MYCOPHENOLIC ACID
     Indication: RENAL TRANSPLANT
     Dosage: 2X 500 MG
     Route: 048
  3. PREDNISOLONE. [Suspect]
     Active Substance: PREDNISOLONE
     Indication: RENAL TRANSPLANT
  4. VALSARTAN AND HYDROCHLOROTHIAZIDE [Concomitant]
     Active Substance: HYDROCHLOROTHIAZIDE\VALSARTAN
     Indication: SUPINE HYPERTENSION
     Dosage: 80 MG/12.5 MG IN THE EVENING
     Route: 065
  5. ENVARSUS XR [Suspect]
     Active Substance: TACROLIMUS
     Indication: RENAL TRANSPLANT
  6. ROSUVASTATIN. [Concomitant]
     Active Substance: ROSUVASTATIN
     Indication: HYPERLIPIDAEMIA
     Dosage: 1X 5 MG, 1X40 MG
     Route: 065
  7. FAMOTIDINE. [Concomitant]
     Active Substance: FAMOTIDINE
     Indication: GASTROOESOPHAGEAL REFLUX DISEASE
     Dosage: 40 MG, 1X PER DAY, IN THE EVENING
  8. DOXAZOSIN MESILATE [Concomitant]
     Active Substance: DOXAZOSIN MESYLATE
     Indication: SUPINE HYPERTENSION
     Dosage: 2 MG, 2X PER DAY
     Route: 065
  9. PREDNISOLONE. [Suspect]
     Active Substance: PREDNISOLONE
     Indication: IMMUNOSUPPRESSION
     Dosage: 5 MG, 1X PER DAY, IN THE MORNING
     Route: 065
  10. FUROSEMIDE. [Concomitant]
     Active Substance: FUROSEMIDE
     Indication: SUPINE HYPERTENSION
     Dosage: 40 MG, 1X PER DAY, IN THE MORNING
  11. ENVARSUS XR [Suspect]
     Active Substance: TACROLIMUS
     Indication: IMMUNOSUPPRESSION
     Dosage: 2 MG, 1X PER DAY, IN THE MORNING
     Route: 048
  12. HYDROCHLOROTHIAZIDE;TELMISARTAN [Concomitant]
     Active Substance: HYDROCHLOROTHIAZIDE\TELMISARTAN
     Dosage: 40 MG/12.5 MG, 1X PER DAY, IN THE MORNING
     Route: 065
  13. ALLOPURINOL. [Concomitant]
     Active Substance: ALLOPURINOL
     Indication: HYPERURICAEMIA
     Dosage: 100 MG, 3X PER DAY
  14. BENFOTIAMINE;PYRIDOXINE [Concomitant]
     Active Substance: BENFOTIAMINE\PYRIDOXINE
     Indication: BACK PAIN
     Dosage: 200+200 MG
     Route: 065
  15. BISOPROLOL [Concomitant]
     Active Substance: BISOPROLOL
     Indication: SUPINE HYPERTENSION
     Dosage: 2.5 MG, 2X PER DAY
  16. URAPIDIL [Concomitant]
     Active Substance: URAPIDIL
     Indication: SUPINE HYPERTENSION
     Dosage: 30 MG, 1X PER DAY, IN THE MORNING
  17. MYCOPHENOLATE [Suspect]
     Active Substance: MYCOPHENOLIC ACID
     Indication: IMMUNOSUPPRESSION
  18. HYDROCHLOROTHIAZIDE;TELMISARTAN [Concomitant]
     Active Substance: HYDROCHLOROTHIAZIDE\TELMISARTAN
     Indication: SUPINE HYPERTENSION
     Dosage: 2X20/6.25 MG
     Route: 065

REACTIONS (9)
  - Supine hypertension [Recovering/Resolving]
  - Back pain [Unknown]
  - Drug ineffective [Recovering/Resolving]
  - Cardiac autonomic neuropathy [Unknown]
  - Non-dipping [Unknown]
  - Hypertonia [Unknown]
  - Secondary hypertension [Unknown]
  - Blood pressure fluctuation [Recovered/Resolved]
  - Autonomic neuropathy [Recovering/Resolving]

NARRATIVE: CASE EVENT DATE: 201710
